FAERS Safety Report 14629305 (Version 2)
Quarter: 2018Q1

REPORT INFORMATION
  Report Type: Spontaneous
  Country: ES (occurrence: ES)
  Receive Date: 20180313
  Receipt Date: 20180320
  Transmission Date: 20180509
  Serious: Yes (Other)
  Sender: FDA-Public Use
  Company Number: ES-AMGEN-ESPSP2018023832

PATIENT
  Age: 58 Year
  Sex: Female

DRUGS (9)
  1. ENALAPRIL [Concomitant]
     Active Substance: ENALAPRIL
     Dosage: 5 MG, BID
  2. ATORVASTATINE [Concomitant]
     Active Substance: ATORVASTATIN
     Dosage: UNK (80/10)
  3. SITAGLIPTIN [Concomitant]
     Active Substance: SITAGLIPTIN
     Dosage: UNK UNK, BID
  4. CALCIFEDIOL [Concomitant]
     Active Substance: CALCIFEDIOL
     Dosage: 266 MUG, Q3WK
  5. METFORMIN [Concomitant]
     Active Substance: METFORMIN HYDROCHLORIDE
     Dosage: 1000 UNK, UNK
  6. VERNIES [Concomitant]
     Active Substance: NITROGLYCERIN
  7. REPATHA [Suspect]
     Active Substance: EVOLOCUMAB
     Indication: PROPHYLAXIS
     Dosage: UNK, Q2WK
     Route: 065
     Dates: start: 201612
  8. PANTECTA [Concomitant]
     Active Substance: PANTOPRAZOLE SODIUM
     Dosage: UNK UNK, QD
  9. ADIRO [Concomitant]
     Active Substance: ASPIRIN
     Dosage: 100 UNK, UNK

REACTIONS (2)
  - Skin lesion [Unknown]
  - Diabetic neuropathy [Unknown]
